FAERS Safety Report 7884683-X (Version None)
Quarter: 2011Q4

REPORT INFORMATION
  Report Type: 
  Country: None (occurrence: None)
  Receive Date: 20111102
  Receipt Date: 20111026
  Transmission Date: 20120403
  Serious: Yes (Other)
  Sender: FDA-Public Use
  Company Number: US-US-EMD SERONO, INC.-7092202

PATIENT
  Sex: Female

DRUGS (3)
  1. NALTREXONE HYDROCHLORIDE [Concomitant]
  2. REBIF [Suspect]
     Indication: PRODUCT USED FOR UNKNOWN INDICATION
     Route: 058
     Dates: start: 20110726, end: 20111001
  3. NALTREXONE HYDROCHLORIDE [Concomitant]

REACTIONS (3)
  - BODY TEMPERATURE INCREASED [None]
  - WHITE BLOOD CELL COUNT INCREASED [None]
  - PHARYNGEAL HAEMORRHAGE [None]
